FAERS Safety Report 20278478 (Version 1)
Quarter: 2022Q1

REPORT INFORMATION
  Report Type: Report from Study
  Country: US (occurrence: US)
  Receive Date: 20220103
  Receipt Date: 20220103
  Transmission Date: 20220423
  Serious: Yes (Hospitalization)
  Sender: FDA-Public Use
  Company Number: US-TAKEDA-US201824189

PATIENT
  Age: 81 Year
  Sex: Male
  Weight: 86.3 kg

DRUGS (12)
  1. TEDUGLUTIDE [Suspect]
     Active Substance: TEDUGLUTIDE
     Indication: Short-bowel syndrome
     Dosage: UNK
     Route: 065
  2. TEDUGLUTIDE [Suspect]
     Active Substance: TEDUGLUTIDE
     Indication: Short-bowel syndrome
     Dosage: UNK
     Route: 065
  3. TEDUGLUTIDE [Suspect]
     Active Substance: TEDUGLUTIDE
     Indication: Short-bowel syndrome
     Dosage: UNK
     Route: 065
  4. TEDUGLUTIDE [Suspect]
     Active Substance: TEDUGLUTIDE
     Indication: Short-bowel syndrome
     Dosage: UNK
     Route: 065
  5. CYANOCOBALAMIN [Concomitant]
     Active Substance: CYANOCOBALAMIN
     Indication: Hypovitaminosis
  6. LOSARTAN [Concomitant]
     Active Substance: LOSARTAN
     Indication: Hypertension
  7. MUPIROCIN [Concomitant]
     Active Substance: MUPIROCIN
     Indication: Animal bite
  8. CLINDAMYCIN [Concomitant]
     Active Substance: CLINDAMYCIN
     Indication: Animal bite
  9. DICLOFENAC [Concomitant]
     Active Substance: DICLOFENAC
     Indication: Osteoarthritis
     Dosage: 70 MILLIGRAM, BID
     Route: 048
     Dates: start: 20191204
  10. DICLOFENAC SODIUM [Concomitant]
     Active Substance: DICLOFENAC SODIUM
     Indication: Osteoarthritis
     Dosage: 0.40 GRAM, PRN
     Route: 061
     Dates: start: 20190228
  11. GUAIFENESIN [Concomitant]
     Active Substance: GUAIFENESIN
     Indication: Nasopharyngitis
     Dosage: 10 MILLILITER, PRN
     Route: 048
     Dates: start: 20191218, end: 20191228
  12. BENZONATATE [Concomitant]
     Active Substance: BENZONATATE
     Indication: Upper respiratory tract infection
     Dosage: 200 MILLIGRAM, TID
     Route: 048
     Dates: start: 20190203, end: 20190213

REACTIONS (1)
  - Complication associated with device [Recovered/Resolved]

NARRATIVE: CASE EVENT DATE: 20180701
